FAERS Safety Report 17275548 (Version 2)
Quarter: 2020Q1

REPORT INFORMATION
  Report Type: Spontaneous
  Country: US (occurrence: US)
  Receive Date: 20200116
  Receipt Date: 20200127
  Transmission Date: 20200409
  Serious: No
  Sender: FDA-Public Use
  Company Number: US-ASTRAZENECA-2020SE06859

PATIENT
  Age: 20415 Day
  Sex: Female

DRUGS (2)
  1. ZOMIG [Suspect]
     Active Substance: ZOLMITRIPTAN
     Dosage: AS REQUIRED
     Route: 045
     Dates: end: 20200112
  2. ZOMIG [Suspect]
     Active Substance: ZOLMITRIPTAN
     Dosage: 5.0MG AS REQUIRED
     Route: 045
     Dates: start: 20190213, end: 20191231

REACTIONS (3)
  - Migraine [Not Recovered/Not Resolved]
  - Neuralgia [Unknown]
  - Product dose omission [Unknown]

NARRATIVE: CASE EVENT DATE: 20190501
